FAERS Safety Report 6177419-4 (Version None)
Quarter: 2009Q2

REPORT INFORMATION
  Report Type: 
  Country: None (occurrence: None)
  Receive Date: 20090504
  Receipt Date: 20090417
  Transmission Date: 20091009
  Serious: Yes (Hospitalization)
  Sender: FDA-Public Use
  Company Number: US-AMGEN-US345201

PATIENT
  Sex: Male
  Weight: 78.3 kg

DRUGS (1)
  1. PROCRIT [Suspect]
     Indication: ANAEMIA
     Route: 065
     Dates: start: 20051130

REACTIONS (1)
  - THROMBOCYTHAEMIA [None]
